FAERS Safety Report 6021630-X (Version None)
Quarter: 2008Q4

REPORT INFORMATION
  Report Type: 
  Country: None (occurrence: None)
  Receive Date: 20081229
  Receipt Date: 20081219
  Transmission Date: 20090506
  Serious: Yes (Other)
  Sender: FDA-Public Use
  Company Number: US-ABBOTT-08P-163-0494306-00

PATIENT
  Sex: Female
  Weight: 61.29 kg

DRUGS (4)
  1. HUMIRA [Suspect]
     Indication: IRITIS
     Dates: start: 20080511, end: 20081115
  2. PRED FORTE EYE DRPOS [Concomitant]
     Indication: GLAUCOMA
     Dosage: NOT REPORTED
  3. PRED FORTE EYE DRPOS [Concomitant]
     Indication: CATARACT
  4. ANTIOBIOTIC EYE  DROP [Concomitant]
     Indication: ANTIBIOTIC PROPHYLAXIS
     Dosage: NOT REPORTED

REACTIONS (2)
  - CATARACT [None]
  - GLAUCOMA [None]
